FAERS Safety Report 7142655-7 (Version None)
Quarter: 2010Q4

REPORT INFORMATION
  Report Type: 
  Country: None (occurrence: None)
  Receive Date: 20101207
  Receipt Date: 20101202
  Transmission Date: 20110411
  Serious: Yes (Death, Hospitalization)
  Sender: FDA-Public Use
  Company Number: US-AMGEN-KDC437276

PATIENT
  Sex: Female

DRUGS (12)
  1. CINACALCET HYDROCHLORIDE [Suspect]
     Indication: HYPERPARATHYROIDISM SECONDARY
     Dosage: UNK UNK, UNK
     Dates: start: 20100517, end: 20100706
  2. AMBIEN [Concomitant]
     Dosage: 5 MG, QHS
  3. BUPROPION [Concomitant]
     Dosage: 150 MG, BID
  4. CARVEDILOL [Concomitant]
     Dosage: 25 MG, BID
  5. COUMADIN [Concomitant]
     Dosage: 2 MG, QD
  6. LEXAPRO [Concomitant]
     Dosage: 20 MG, QD
  7. PHOSLO [Concomitant]
     Dosage: UNK UNK, TID
  8. REGLAN [Concomitant]
     Dosage: 10 MG, QID
  9. SODIUM BICARBONATE [Concomitant]
     Dosage: 650 MG, QD
  10. SPIRIVA [Concomitant]
     Dosage: 18 A?G, QD
  11. ZITHROMAX [Concomitant]
  12. AUGMENTIN '125' [Concomitant]

REACTIONS (2)
  - SEPSIS [None]
  - VARICELLA [None]
